FAERS Safety Report 23557074 (Version 2)
Quarter: 2024Q2

REPORT INFORMATION
  Report Type: Report from Study
  Country: CA (occurrence: CA)
  Receive Date: 20240223
  Receipt Date: 20240404
  Transmission Date: 20240716
  Serious: Yes (Other)
  Sender: FDA-Public Use
  Company Number: CA-JNJFOC-20230612683

PATIENT
  Age: 56 Year
  Sex: Male
  Weight: 92 kg

DRUGS (2)
  1. REMICADE [Suspect]
     Active Substance: INFLIXIMAB
     Indication: Crohn^s disease
     Route: 041
     Dates: start: 20151217
  2. REMICADE [Suspect]
     Active Substance: INFLIXIMAB
     Route: 041
     Dates: start: 20160718

REACTIONS (9)
  - Pneumocystis jirovecii infection [Recovered/Resolved]
  - Genital herpes [Recovered/Resolved]
  - Nasopharyngitis [Recovering/Resolving]
  - Flatulence [Unknown]
  - Abdominal distension [Unknown]
  - Nasal congestion [Recovering/Resolving]
  - Frequent bowel movements [Unknown]
  - Abdominal pain [Recovered/Resolved]
  - Constipation [Recovered/Resolved]

NARRATIVE: CASE EVENT DATE: 20230425
